FAERS Safety Report 12086644 (Version 1)
Quarter: 2016Q1

REPORT INFORMATION
  Report Type: Spontaneous
  Country: US (occurrence: US)
  Receive Date: 20160217
  Receipt Date: 20160217
  Transmission Date: 20160526
  Serious: No
  Sender: FDA-Public Use
  Company Number: US-ALLERGAN-1503710US

PATIENT
  Sex: Female

DRUGS (4)
  1. RESTASIS [Suspect]
     Active Substance: CYCLOSPORINE
     Indication: DRY EYE
     Dosage: 2 GTT, Q12H
     Route: 047
     Dates: start: 201502
  2. RESTASIS [Suspect]
     Active Substance: CYCLOSPORINE
     Dosage: UNK
     Route: 047
     Dates: start: 2009
  3. NEOMYCIN AND POLYMYXIN B SULFATES AND DEXAMET [Concomitant]
     Route: 047
  4. PURALUBE [Concomitant]
     Active Substance: MINERAL OIL\PETROLATUM
     Route: 047

REACTIONS (1)
  - Cataract [Unknown]
